FAERS Safety Report 20065850 (Version 1)
Quarter: 2021Q4

REPORT INFORMATION
  Report Type: Spontaneous
  Country: US (occurrence: US)
  Receive Date: 20211114
  Receipt Date: 20211114
  Transmission Date: 20220303
  Serious: No
  Sender: FDA-Public Use
  Company Number: US-JNJFOC-20211104640

PATIENT
  Sex: Female

DRUGS (1)
  1. WOMENS ROGAINE UNSCENTED [Suspect]
     Active Substance: MINOXIDIL
     Indication: Product used for unknown indication
     Dosage: 1/2 CAPFUL ONCE A DAY AT NIGHT
     Route: 061
     Dates: start: 202108

REACTIONS (3)
  - Hair texture abnormal [Unknown]
  - Product container issue [Unknown]
  - Wrong technique in product usage process [Unknown]
